FAERS Safety Report 4988388-4 (Version None)
Quarter: 2006Q2

REPORT INFORMATION
  Report Type: 
  Country: None (occurrence: None)
  Receive Date: 20060426
  Receipt Date: 20060418
  Transmission Date: 20061013
  Serious: Yes (Hospitalization, Other)
  Sender: FDA-Public Use
  Company Number: 2005-03-1771

PATIENT
  Age: 32 Year
  Sex: Male

DRUGS (4)
  1. LOTRISONE [Suspect]
     Indication: TINEA CRURIS
     Dosage: TOP-DERM
     Route: 061
     Dates: start: 20050318
  2. FLUCONAZOLE [Concomitant]
  3. MICONAZOLE [Concomitant]
  4. ZEASORB POWDER [Concomitant]

REACTIONS (7)
  - ANAPHYLACTIC REACTION [None]
  - ANOREXIA [None]
  - CHEST PAIN [None]
  - DRUG INEFFECTIVE [None]
  - EPISTAXIS [None]
  - HAEMORRHAGE [None]
  - WRONG TECHNIQUE IN DRUG USAGE PROCESS [None]
